FAERS Safety Report 17629005 (Version 1)
Quarter: 2020Q2

REPORT INFORMATION
  Report Type: Spontaneous
  Country: US (occurrence: US)
  Receive Date: 20200406
  Receipt Date: 20200406
  Transmission Date: 20200713
  Serious: No
  Sender: FDA-Public Use
  Company Number: US-ALLERGAN-1916327US

PATIENT
  Sex: Female
  Weight: 76 kg

DRUGS (5)
  1. CANASA [Suspect]
     Active Substance: MESALAMINE
     Dosage: 1 DF, QHS
     Route: 054
  2. CANASA [Suspect]
     Active Substance: MESALAMINE
     Dosage: 1 DF, BID
     Route: 054
  3. MULTIVITAMIN [Concomitant]
     Active Substance: VITAMINS
     Dosage: 1 DF, QD
  4. CANASA [Suspect]
     Active Substance: MESALAMINE
     Indication: PROCTITIS
     Dosage: UNK
     Route: 065
     Dates: start: 20190422
  5. SPECTAZOLE [Concomitant]
     Active Substance: ECONAZOLE NITRATE
     Dosage: 1 APPLICATION TWICE DAILY TO AFFECTED AREA
     Route: 061

REACTIONS (1)
  - Off label use [Unknown]
